FAERS Safety Report 13251575 (Version 1)
Quarter: 2017Q1

REPORT INFORMATION
  Report Type: Spontaneous
  Country: US (occurrence: US)
  Receive Date: 20170220
  Receipt Date: 20170220
  Transmission Date: 20170428
  Serious: No
  Sender: FDA-Public Use
  Company Number: US-TEVA-724101ACC

PATIENT
  Age: 59 Year
  Sex: Female
  Weight: 66.74 kg

DRUGS (1)
  1. PROGECAP [Suspect]
     Active Substance: PROGESTERONE
     Indication: HORMONE REPLACEMENT THERAPY
     Dates: start: 201501

REACTIONS (3)
  - Lower limb fracture [Unknown]
  - Insomnia [Unknown]
  - Sleep disorder [Unknown]

NARRATIVE: CASE EVENT DATE: 201608
